FAERS Safety Report 9481855 (Version 2)
Quarter: 2013Q3

REPORT INFORMATION
  Report Type: Spontaneous
  Country: US (occurrence: US)
  Receive Date: 20130828
  Receipt Date: 20130902
  Transmission Date: 20140515
  Serious: Yes (Death, Other)
  Sender: FDA-Public Use
  Company Number: US-AMGEN-USASP2013059572

PATIENT
  Age: 74 Year
  Sex: Female
  Weight: 181.4 kg

DRUGS (1)
  1. PROLIA [Suspect]
     Indication: PRODUCT USED FOR UNKNOWN INDICATION
     Route: 065

REACTIONS (5)
  - Spinal cord infarction [Unknown]
  - Respiratory failure [Fatal]
  - Paraplegia [Unknown]
  - Femur fracture [Unknown]
  - Fall [Unknown]
